FAERS Safety Report 24879176 (Version 1)
Quarter: 2025Q1

REPORT INFORMATION
  Report Type: Spontaneous
  Country: US (occurrence: US)
  Receive Date: 20250123
  Receipt Date: 20250123
  Transmission Date: 20250409
  Serious: No
  Sender: CATALYST PHARMA
  Company Number: US-CATALYST PHARMACEUTICALS, INC-US-CATA-24-00882

PATIENT
  Age: 69 Year
  Sex: Female
  Weight: 68.027 kg

DRUGS (17)
  1. FIRDAPSE [Suspect]
     Active Substance: AMIFAMPRIDINE PHOSPHATE
     Indication: Myasthenic syndrome
     Dosage: 10 MG THREE TIMES DAILY FOR 7 DAYS, THEN INCREASED BY 5 MG EVERY 4 DAYS UNTIL A MAX OF 60 MG PER DAY
     Route: 048
     Dates: start: 20230401
  2. FIRDAPSE [Suspect]
     Active Substance: AMIFAMPRIDINE PHOSPHATE
     Dosage: 60 MG PER DAY
     Route: 048
     Dates: end: 2024
  3. FIRDAPSE [Suspect]
     Active Substance: AMIFAMPRIDINE PHOSPHATE
     Route: 048
     Dates: start: 20240718, end: 20240724
  4. FIRDAPSE [Suspect]
     Active Substance: AMIFAMPRIDINE PHOSPHATE
     Dosage: TITRATED BACK TO 80 MG PER DAY
     Route: 048
     Dates: start: 20240725
  5. ASPIRIN [Concomitant]
     Active Substance: ASPIRIN
     Indication: Product used for unknown indication
     Dosage: 81 MG DAILY
     Route: 065
  6. BETAMETHASONE DIPROPIONATE [Concomitant]
     Active Substance: BETAMETHASONE DIPROPIONATE
     Indication: Product used for unknown indication
     Dosage: TWICE DAILY
     Route: 065
  7. CLARITIN [Concomitant]
     Active Substance: LORATADINE
     Indication: Product used for unknown indication
     Dosage: 10 MG DAILY
     Route: 065
  8. FASLODEX [Concomitant]
     Active Substance: FULVESTRANT
     Indication: Product used for unknown indication
     Dosage: 250 MG ONCE MONTHLY
     Route: 030
  9. FISH OIL [Concomitant]
     Active Substance: FISH OIL
     Indication: Product used for unknown indication
     Dosage: 1000 MG DAILY
     Route: 065
  10. GAMUNEX-C [Concomitant]
     Active Substance: HUMAN IMMUNOGLOBULIN G
     Indication: Product used for unknown indication
     Route: 065
  11. KENCUR EXTRACT [Concomitant]
     Indication: Product used for unknown indication
     Dosage: DAILY
     Route: 065
  12. LAMOTRIGINE [Concomitant]
     Active Substance: LAMOTRIGINE
     Indication: Product used for unknown indication
     Dosage: 25 MG TWICE DAILY
     Route: 065
  13. MESTINON [Concomitant]
     Active Substance: PYRIDOSTIGMINE BROMIDE
     Indication: Product used for unknown indication
     Dosage: 60 MG THREE TIMES DAILY
     Route: 065
  14. VERZENIO [Concomitant]
     Active Substance: ABEMACICLIB
     Indication: Product used for unknown indication
     Dosage: 200 MG TWICE DAILY
     Route: 065
  15. VITAMIN B COMPLEX [Concomitant]
     Active Substance: CYANOCOBALAMIN\DEXPANTHENOL\NIACINAMIDE\PYRIDOXINE HYDROCHLORIDE\RIBOFLAVIN 5^-PHOSPHATE SODIUM\THIA
     Indication: Product used for unknown indication
     Dosage: 1 TABLET DAILY
     Route: 065
  16. VITAMIN C [Concomitant]
     Active Substance: ASCORBIC ACID
     Indication: Product used for unknown indication
     Dosage: 1000 MG DAILY
     Route: 065
  17. VITAMIN D3 [Concomitant]
     Active Substance: CHOLECALCIFEROL
     Indication: Product used for unknown indication
     Dosage: 400 UNITS DAILY
     Route: 065

REACTIONS (1)
  - Hepatic enzyme increased [Unknown]

NARRATIVE: CASE EVENT DATE: 20240701
